FAERS Safety Report 26093785 (Version 2)
Quarter: 2025Q4

REPORT INFORMATION
  Report Type: Spontaneous
  Country: US (occurrence: US)
  Receive Date: 20251126
  Receipt Date: 20251230
  Transmission Date: 20260117
  Serious: Yes (Hospitalization)
  Sender: PARI RESPIRATORY EQUIPMENT
  Company Number: US-PARI RESPIRATORY EQUIPMENT, INC.-2025PAR00081

PATIENT
  Age: 15 Year
  Sex: Female
  Weight: 28 kg

DRUGS (2)
  1. KITABIS PAK [Suspect]
     Active Substance: TOBRAMYCIN
     Indication: Tracheitis
     Dosage: 300 MG, 2X/DAY
     Dates: start: 202309
  2. KITABIS PAK [Suspect]
     Active Substance: TOBRAMYCIN
     Dosage: UNK
     Dates: start: 2025

REACTIONS (2)
  - Metapneumovirus infection [Recovered/Resolved]
  - Off label use [Not Recovered/Not Resolved]

NARRATIVE: CASE EVENT DATE: 20230901
